FAERS Safety Report 9476355 (Version 2)
Quarter: 2013Q3

REPORT INFORMATION
  Report Type: Spontaneous
  Country: US (occurrence: US)
  Receive Date: 20130826
  Receipt Date: 20130904
  Transmission Date: 20140515
  Serious: Yes (Other)
  Sender: FDA-Public Use
  Company Number: US-UCBSA-096081

PATIENT
  Age: 44 Year
  Sex: Female

DRUGS (6)
  1. CIMZIA [Suspect]
     Indication: CROHN^S DISEASE
     Dates: start: 201001, end: 2013
  2. PREDNISONE [Concomitant]
     Indication: CROHN^S DISEASE
     Dosage: DOSE: 10 MG DAILY
     Dates: start: 201304
  3. PREDNISONE [Concomitant]
     Indication: DIARRHOEA
     Dosage: DOSE: 10 MG DAILY
     Dates: start: 201304
  4. PREVACID [Concomitant]
     Indication: GASTROOESOPHAGEAL REFLUX DISEASE
     Dosage: DOSE: 30 MG
  5. LORAZEPAM [Concomitant]
     Indication: SLEEP DISORDER
     Dosage: DOSE: 1/2 TAB AT HS
  6. BACTRIM [Concomitant]

REACTIONS (13)
  - Anal infection [Unknown]
  - Infection [Unknown]
  - Anal fistula [Unknown]
  - Neuralgia [Unknown]
  - Fatigue [Not Recovered/Not Resolved]
  - White blood cell count increased [Unknown]
  - Hypoaesthesia [Not Recovered/Not Resolved]
  - Paraesthesia [Not Recovered/Not Resolved]
  - Diarrhoea [Unknown]
  - Pain in extremity [Not Recovered/Not Resolved]
  - Dysarthria [Recovered/Resolved]
  - Dehydration [Recovered/Resolved]
  - Anaemia [Unknown]
